FAERS Safety Report 7337836-3 (Version None)
Quarter: 2011Q1

REPORT INFORMATION
  Report Type: 
  Country: None (occurrence: None)
  Receive Date: 20110308
  Receipt Date: 20110301
  Transmission Date: 20110831
  Serious: Yes (Death, Other)
  Sender: FDA-Public Use
  Company Number: BR-GENZYME-CLOF-1001461

PATIENT

DRUGS (3)
  1. CLOLAR [Suspect]
  2. CLOLAR [Suspect]
     Indication: ACUTE LYMPHOCYTIC LEUKAEMIA
     Dosage: UNK
  3. CLOLAR [Suspect]

REACTIONS (4)
  - PULMONARY HAEMORRHAGE [None]
  - MUCOSAL INFLAMMATION [None]
  - THERAPEUTIC RESPONSE DECREASED [None]
  - NEOPLASM MALIGNANT [None]
